FAERS Safety Report 22048480 (Version 1)
Quarter: 2023Q1

REPORT INFORMATION
  Report Type: Spontaneous
  Country: ES (occurrence: ES)
  Receive Date: 20230301
  Receipt Date: 20230301
  Transmission Date: 20230418
  Serious: Yes (Hospitalization, Other)
  Sender: FDA-Public Use
  Company Number: ES-AEMPS-1334203

PATIENT
  Age: 85 Year
  Sex: Female
  Weight: 84.5 kg

DRUGS (1)
  1. QUETIAPINE FUMARATE [Suspect]
     Active Substance: QUETIAPINE FUMARATE
     Indication: Insomnia
     Dosage: 50 MILLIGRAM, ONCE A DAY(0-0-2 )
     Route: 048
     Dates: start: 20230206, end: 20230209

REACTIONS (4)
  - Aspiration [Recovered/Resolved]
  - Depressed level of consciousness [Recovered/Resolved]
  - Tracheobronchitis [Recovered/Resolved]
  - Vomiting [Recovered/Resolved]

NARRATIVE: CASE EVENT DATE: 20230209
